FAERS Safety Report 23177051 (Version 1)
Quarter: 2023Q4

REPORT INFORMATION
  Report Type: Spontaneous
  Country: US (occurrence: None)
  Receive Date: 20231112
  Receipt Date: 20231112
  Transmission Date: 20240109
  Serious: Yes (Hospitalization, Disabling)
  Sender: FDA-Public Use
  Company Number: None

PATIENT
  Age: 27 Year
  Sex: Female

DRUGS (2)
  1. MEDROXYPROGESTERONE ACETATE [Suspect]
     Active Substance: MEDROXYPROGESTERONE ACETATE
     Indication: Heavy menstrual bleeding
     Dates: start: 20211016, end: 20211016
  2. MEDROXYPROGESTERONE ACETATE [Suspect]
     Active Substance: MEDROXYPROGESTERONE ACETATE
     Indication: Dysmenorrhoea

REACTIONS (15)
  - Vaginal haemorrhage [None]
  - Muscle spasms [None]
  - Gastrointestinal disorder [None]
  - Headache [None]
  - Cognitive disorder [None]
  - Memory impairment [None]
  - Visual snow syndrome [None]
  - Visual impairment [None]
  - Postural orthostatic tachycardia syndrome [None]
  - Craniocerebral injury [None]
  - Migraine [None]
  - Gastrooesophageal reflux disease [None]
  - May-Thurner syndrome [None]
  - Pelvic congestion [None]
  - Irritable bowel syndrome [None]

NARRATIVE: CASE EVENT DATE: 20211016
